FAERS Safety Report 13493974 (Version 1)
Quarter: 2017Q2

REPORT INFORMATION
  Report Type: Spontaneous
  Country: US (occurrence: US)
  Receive Date: 20170427
  Receipt Date: 20170427
  Transmission Date: 20170830
  Serious: Yes (Other)
  Sender: FDA-Public Use
  Company Number: PHHY2017US059824

PATIENT
  Age: 52 Year
  Sex: Male

DRUGS (3)
  1. MEROPENEM. [Suspect]
     Active Substance: MEROPENEM
     Indication: PNEUMONIA PSEUDOMONAL
     Route: 065
  2. CEFTOLOZANE SULFATE [Concomitant]
     Indication: PNEUMONIA PSEUDOMONAL
     Dosage: UNK
     Route: 005
  3. LINEZOLID. [Concomitant]
     Active Substance: LINEZOLID
     Indication: PNEUMONIA PSEUDOMONAL
     Route: 065

REACTIONS (1)
  - Drug resistance [Unknown]
